FAERS Safety Report 6305390-0 (Version None)
Quarter: 2009Q3

REPORT INFORMATION
  Report Type: 
  Country: None (occurrence: None)
  Receive Date: 20090807
  Receipt Date: 20090730
  Transmission Date: 20100115
  Serious: Yes (Disabling, Other)
  Sender: FDA-Public Use
  Company Number: RENA-1000490

PATIENT
  Age: 50 Year
  Sex: Female
  Weight: 53 kg

DRUGS (2)
  1. RENAGEL [Suspect]
     Indication: HYPERPHOSPHATAEMIA
     Dosage: 2 TAB, TID, ORAL
     Route: 048
     Dates: start: 20090602, end: 20090615
  2. CINACALCET HYDROCHLORIDE [Suspect]
     Indication: HYPERPARATHYROIDISM
     Dosage: 90 MG, QD,
     Dates: start: 20090602, end: 20090615

REACTIONS (4)
  - BLISTER [None]
  - PRURITUS [None]
  - SKIN EXFOLIATION [None]
  - URTICARIA [None]
